FAERS Safety Report 5956926-0 (Version None)
Quarter: 2008Q4

REPORT INFORMATION
  Report Type: 
  Country: None (occurrence: None)
  Receive Date: 20081118
  Receipt Date: 20081023
  Transmission Date: 20090506
  Serious: Yes (Other)
  Sender: FDA-Public Use
  Company Number: DE-SANOFI-SYNTHELABO-A01200813430

PATIENT
  Sex: Male

DRUGS (1)
  1. ISCOVER [Suspect]
     Indication: STENT PLACEMENT
     Dosage: UNK
     Route: 048

REACTIONS (2)
  - IN-STENT ARTERIAL RESTENOSIS [None]
  - NO THERAPEUTIC RESPONSE [None]
